FAERS Safety Report 5082488-9 (Version None)
Quarter: 2006Q3

REPORT INFORMATION
  Report Type: 
  Country: None (occurrence: None)
  Receive Date: 20060817
  Receipt Date: 20060810
  Transmission Date: 20061208
  Serious: Yes (Hospitalization)
  Sender: FDA-Public Use
  Company Number: PHNR2006AU01023

PATIENT
  Age: 42 Year
  Sex: Male

DRUGS (4)
  1. ZUCLOPENTHIXOL [Concomitant]
     Dosage: 400 MG, QW2
  2. VALPROATE SODIUM [Concomitant]
     Dosage: 1200 MG, BID
  3. ATORVASTATIN CALCIUM [Concomitant]
     Dosage: 2 G, QD NOCTE
  4. CLOZARIL [Suspect]
     Indication: SCHIZOPHRENIA
     Route: 048
     Dates: start: 20060713, end: 20060727

REACTIONS (1)
  - TROPONIN I INCREASED [None]
